FAERS Safety Report 8127543-1 (Version None)
Quarter: 2012Q1

REPORT INFORMATION
  Report Type: 
  Country: None (occurrence: None)
  Receive Date: 20120210
  Receipt Date: 20120127
  Transmission Date: 20120608
  Serious: Yes (Hospitalization, Other)
  Sender: FDA-Public Use
  Company Number: BR-MEDIMMUNE-MEDI-0013189

PATIENT
  Sex: Male
  Weight: 8 kg

DRUGS (3)
  1. SPIRONOLACTONE [Concomitant]
     Route: 048
     Dates: start: 20101201
  2. SYNAGIS [Suspect]
     Indication: CARDIAC DISORDER
     Route: 030
     Dates: start: 20100701, end: 20100809
  3. SYNAGIS [Suspect]
     Route: 030
     Dates: start: 20110401, end: 20110801

REACTIONS (11)
  - CHEST X-RAY ABNORMAL [None]
  - NOCTURNAL DYSPNOEA [None]
  - LARYNGITIS [None]
  - DYSPHONIA [None]
  - DYSPNOEA [None]
  - PNEUMONIA [None]
  - COUGH [None]
  - ABDOMINAL DISTENSION [None]
  - RELAPSING FEVER [None]
  - FAECES DISCOLOURED [None]
  - GASTROOESOPHAGEAL REFLUX DISEASE [None]
